FAERS Safety Report 4828285-8 (Version None)
Quarter: 2005Q4

REPORT INFORMATION
  Report Type: 
  Country: None (occurrence: None)
  Receive Date: 20051115
  Receipt Date: 20051108
  Transmission Date: 20060501
  Serious: Yes (Hospitalization)
  Sender: FDA-Public Use
  Company Number: FR-GILEAD-2005-0008916

PATIENT
  Age: 49 Year
  Sex: Male

DRUGS (29)
  1. VIREAD [Suspect]
     Indication: HIV INFECTION
     Route: 048
     Dates: start: 20051007
  2. CLAVENTIN [Suspect]
     Route: 042
     Dates: start: 20050919, end: 20050930
  3. MOPRAL [Suspect]
     Route: 048
     Dates: start: 20050906
  4. BACTRIM [Suspect]
     Dates: start: 20051005
  5. TELZIR [Concomitant]
     Dates: start: 20050916
  6. EPIVIR [Concomitant]
     Dates: start: 20050916
  7. VINCRISTINE [Concomitant]
     Indication: LYMPHOMA
  8. ENDOXAN [Concomitant]
     Indication: LYMPHOMA
  9. DOXORUBICIN HCL [Concomitant]
     Indication: LYMPHOMA
  10. MABTHERA [Concomitant]
     Indication: LYMPHOMA
  11. HOLOXAN [Concomitant]
     Indication: LYMPHOMA
  12. ETOPOSIDE [Concomitant]
     Indication: LYMPHOMA
  13. VANCOMYCIN [Concomitant]
  14. FLAGYL [Concomitant]
  15. CASPOFUNGIN [Concomitant]
  16. FORTUM [Concomitant]
  17. DALACINE [Concomitant]
  18. TIENAM [Concomitant]
  19. TOBRAMYCIN [Concomitant]
  20. ZYLORIC [Concomitant]
  21. ZOVIRAX [Concomitant]
  22. PHOCYTAN [Concomitant]
  23. ACUPAN [Concomitant]
  24. HEPARIN [Concomitant]
  25. SPASFON [Concomitant]
  26. PERFALGAN [Concomitant]
  27. VOLUVEN [Concomitant]
  28. LASILIX [Concomitant]
  29. NORVIR [Concomitant]
     Dates: start: 20050916

REACTIONS (2)
  - CONDITION AGGRAVATED [None]
  - HEPATITIS CHOLESTATIC [None]
